FAERS Safety Report 20446826 (Version 2)
Quarter: 2022Q1

REPORT INFORMATION
  Report Type: Report from Study
  Country: FR (occurrence: None)
  Receive Date: 20220208
  Receipt Date: 20220315
  Transmission Date: 20220424
  Serious: Yes (Other)
  Sender: FDA-Public Use
  Company Number: FR-ROCHE-2446997

PATIENT
  Age: 70 Year
  Sex: Female
  Weight: 94 kg

DRUGS (13)
  1. FARICIMAB [Suspect]
     Active Substance: FARICIMAB
     Indication: Neovascular age-related macular degeneration
     Dosage: DATE OF MOST RECENT DOSE OF FARICIMAB PRIOR TO AE AND SAE ONSET: 09/OCT/2019 AT 13:05
     Route: 050
     Dates: start: 20191009
  2. PLACEBO [Suspect]
     Active Substance: UNSPECIFIED INGREDIENT
     Indication: Neovascular age-related macular degeneration
     Dosage: DATE OF MOST RECENT DOSE PRIOR TO AE AND SAE ONSET: 09/OCT/2019 AT 13:05
     Route: 050
     Dates: start: 20191009
  3. SIMVASTATIN [Concomitant]
     Active Substance: SIMVASTATIN
     Indication: Hypercholesterolaemia
     Route: 048
  4. METFORMIN HYDROCHLORIDE [Concomitant]
     Active Substance: METFORMIN HYDROCHLORIDE
     Indication: Diabetes mellitus
     Route: 048
     Dates: start: 20200706
  5. IRBESARTAN [Concomitant]
     Active Substance: IRBESARTAN
     Indication: Hypertension
     Route: 048
  6. FERROUS SULFATE [Concomitant]
     Active Substance: FERROUS SULFATE
     Indication: Anaemia
     Route: 048
     Dates: start: 20200120
  7. FERROUS SULFATE [Concomitant]
     Active Substance: FERROUS SULFATE
     Route: 048
     Dates: start: 20201008
  8. OXETORONE [Concomitant]
     Active Substance: OXETORONE
     Indication: Headache
     Route: 048
     Dates: start: 1998
  9. SITAGLIPTIN [Concomitant]
     Active Substance: SITAGLIPTIN
     Indication: Diabetes mellitus
     Route: 048
     Dates: start: 20200707
  10. ACETAMINOPHEN [Concomitant]
     Active Substance: ACETAMINOPHEN
     Route: 048
     Dates: start: 20210325, end: 20210326
  11. ACETAMINOPHEN [Concomitant]
     Active Substance: ACETAMINOPHEN
     Route: 048
     Dates: start: 20210603, end: 20210605
  12. VAXZEVRIA [Concomitant]
     Active Substance: AZD-1222
     Route: 030
     Dates: start: 20210325, end: 20210325
  13. VAXZEVRIA [Concomitant]
     Active Substance: AZD-1222
     Route: 030
     Dates: start: 20210603, end: 20210603

REACTIONS (1)
  - Retinal pigment epithelial tear [Recovered/Resolved with Sequelae]

NARRATIVE: CASE EVENT DATE: 20191014
